FAERS Safety Report 17100517 (Version 1)
Quarter: 2019Q4

REPORT INFORMATION
  Report Type: Spontaneous
  Country: US (occurrence: US)
  Receive Date: 20191202
  Receipt Date: 20191202
  Transmission Date: 20200122
  Serious: No
  Sender: FDA-Public Use
  Company Number: US-ASTRAZENECA-2019SF65218

PATIENT
  Age: 51 Year
  Sex: Male
  Weight: 116.1 kg

DRUGS (6)
  1. SOTALOL. [Concomitant]
     Active Substance: SOTALOL
     Indication: ARRHYTHMIA
     Route: 048
  2. BABY ASPIRIN [Concomitant]
     Active Substance: ASPIRIN
     Route: 048
  3. LISINOPRIL. [Suspect]
     Active Substance: LISINOPRIL
     Indication: HYPERTENSION
     Route: 048
     Dates: start: 201812
  4. METOPROLOL. [Suspect]
     Active Substance: METOPROLOL
     Indication: HEART DISEASE CONGENITAL
     Dosage: 25 MG IN THE MORNING AND 50 MG IN THE EVENING
     Route: 048
     Dates: start: 201812
  5. SEROQUEL [Suspect]
     Active Substance: QUETIAPINE FUMARATE
     Indication: BIPOLAR DISORDER
     Route: 048
     Dates: start: 2015, end: 20191112
  6. ATORVASTATIN [Concomitant]
     Active Substance: ATORVASTATIN
     Indication: BLOOD CHOLESTEROL INCREASED
     Route: 048

REACTIONS (5)
  - Blood triglycerides increased [Recovering/Resolving]
  - Hypertension [Unknown]
  - High density lipoprotein decreased [Unknown]
  - Arrhythmia [Unknown]
  - Insomnia [Not Recovered/Not Resolved]

NARRATIVE: CASE EVENT DATE: 2018
